FAERS Safety Report 5476993-0 (Version None)
Quarter: 2007Q4

REPORT INFORMATION
  Report Type: 
  Country: None (occurrence: None)
  Receive Date: 20071003
  Receipt Date: 20071003
  Transmission Date: 20080405
  Serious: Yes (Death, Life-Threatening, Hospitalization, Other)
  Sender: FDA-Public Use
  Company Number: None

PATIENT
  Age: 5 Month
  Sex: Female
  Weight: 52.6173 kg

DRUGS (1)
  1. OXYCODONE HCL [Suspect]

REACTIONS (5)
  - ABNORMAL BEHAVIOUR [None]
  - NAUSEA [None]
  - ORAL INTAKE REDUCED [None]
  - STARVATION [None]
  - VOMITING [None]
